FAERS Safety Report 14947503 (Version 1)
Quarter: 2018Q2

REPORT INFORMATION
  Report Type: Spontaneous
  Country: US (occurrence: US)
  Receive Date: 20180508
  Receipt Date: 20180508
  Transmission Date: 20180711
  Serious: No
  Sender: FDA-Public Use
  Company Number: None

PATIENT
  Sex: Female

DRUGS (1)
  1. CAPECITABINE 500MG WEST-WARD [Suspect]
     Active Substance: CAPECITABINE
     Indication: NEOPLASM MALIGNANT
     Dosage: 1500MG BID FOR 2 WEEKS ON AND 1 WEEK OFF PO
     Route: 048
     Dates: start: 20180320

REACTIONS (1)
  - Palmar-plantar erythrodysaesthesia syndrome [None]
